FAERS Safety Report 14757861 (Version 2)
Quarter: 2019Q1

REPORT INFORMATION
  Report Type: Spontaneous
  Country: US (occurrence: US)
  Receive Date: 20180413
  Receipt Date: 20190308
  Transmission Date: 20190417
  Serious: Yes (Other)
  Sender: FDA-Public Use
  Company Number: US-ASTRAZENECA-2018SE45281

PATIENT
  Sex: Female

DRUGS (24)
  1. ONGLYZA [Suspect]
     Active Substance: SAXAGLIPTIN HYDROCHLORIDE
     Route: 048
     Dates: start: 2015
  2. LEVOTHYROXINE. [Concomitant]
     Active Substance: LEVOTHYROXINE
  3. GLIPIZIDE. [Concomitant]
     Active Substance: GLIPIZIDE
  4. SERTRALINE [Concomitant]
     Active Substance: SERTRALINE HYDROCHLORIDE
  5. KLOR-CON [Concomitant]
     Active Substance: POTASSIUM CHLORIDE
  6. ONGLYZA [Suspect]
     Active Substance: SAXAGLIPTIN HYDROCHLORIDE
     Route: 048
     Dates: start: 20140826
  7. PRAVASTATIN. [Concomitant]
     Active Substance: PRAVASTATIN
  8. NAPROXEN. [Concomitant]
     Active Substance: NAPROXEN
  9. DORZOLAMIDE [Concomitant]
     Active Substance: DORZOLAMIDE
  10. LASIX [Concomitant]
     Active Substance: FUROSEMIDE
  11. METOPROLOL. [Concomitant]
     Active Substance: METOPROLOL
  12. DICLOFENAC [Concomitant]
     Active Substance: DICLOFENAC
  13. CYCLOBENZAPRINE. [Concomitant]
     Active Substance: CYCLOBENZAPRINE
  14. ONGLYZA [Suspect]
     Active Substance: SAXAGLIPTIN HYDROCHLORIDE
     Route: 048
     Dates: start: 2013, end: 2015
  15. CETIRIZINE [Concomitant]
     Active Substance: CETIRIZINE HYDROCHLORIDE
  16. KOMBIGLYZE XR [Suspect]
     Active Substance: METFORMIN HYDROCHLORIDE\SAXAGLIPTIN HYDROCHLORIDE
     Route: 048
     Dates: start: 2015
  17. TRAMADOL. [Concomitant]
     Active Substance: TRAMADOL
  18. GABAPENTIN. [Concomitant]
     Active Substance: GABAPENTIN
  19. ASPIRIN. [Concomitant]
     Active Substance: ASPIRIN
  20. LOSARTAN. [Concomitant]
     Active Substance: LOSARTAN
  21. ESCITALOPRAM [Concomitant]
     Active Substance: ESCITALOPRAM OXALATE
  22. VENTOLIN [Concomitant]
     Active Substance: ALBUTEROL SULFATE
  23. LATANOPROST. [Concomitant]
     Active Substance: LATANOPROST
  24. AZITHROMYCIN ANHYDROUS. [Concomitant]
     Active Substance: AZITHROMYCIN ANHYDROUS

REACTIONS (4)
  - Cardiovascular disorder [Unknown]
  - Cardiac failure [Unknown]
  - Cardiac failure congestive [Unknown]
  - Myocardial ischaemia [Unknown]
